FAERS Safety Report 8407640-3 (Version None)
Quarter: 2012Q2

REPORT INFORMATION
  Report Type: 
  Country: None (occurrence: None)
  Receive Date: 20120604
  Receipt Date: 20120531
  Transmission Date: 20120825
  Serious: Yes (Hospitalization)
  Sender: FDA-Public Use
  Company Number: IE-PFIZER INC-2012131959

PATIENT
  Age: 65 Year
  Sex: Male

DRUGS (1)
  1. ZYVOX [Suspect]

REACTIONS (3)
  - THROMBOCYTOPENIA [None]
  - GENERAL PHYSICAL CONDITION ABNORMAL [None]
  - NEPHROPATHY TOXIC [None]
